FAERS Safety Report 5054963-4 (Version None)
Quarter: 2006Q3

REPORT INFORMATION
  Report Type: 
  Country: None (occurrence: None)
  Receive Date: 20060719
  Receipt Date: 20060629
  Transmission Date: 20061208
  Serious: Yes (Other)
  Sender: FDA-Public Use
  Company Number: US-GLAXOSMITHKLINE-A0610774A

PATIENT
  Age: 45 Year
  Sex: Female

DRUGS (9)
  1. REQUIP [Suspect]
     Indication: RESTLESS LEGS SYNDROME
     Route: 048
     Dates: start: 20060502, end: 20060628
  2. FESO4 [Concomitant]
     Dosage: 325MG TWICE PER DAY
  3. LIPITOR [Concomitant]
     Dosage: 40MG PER DAY
  4. UNITHROID [Concomitant]
     Dosage: 100MCG PER DAY
  5. CALCIUM GLUCONATE [Concomitant]
     Dosage: 500MG THREE TIMES PER DAY
  6. MAXZIDE-25 [Concomitant]
  7. PREVACID [Concomitant]
     Dosage: 30MG PER DAY
  8. AMBIEN [Concomitant]
     Dosage: 12.5MG AT NIGHT
  9. LISINOPRIL [Concomitant]

REACTIONS (1)
  - PAPILLOEDEMA [None]
